FAERS Safety Report 25788098 (Version 1)
Quarter: 2025Q3

REPORT INFORMATION
  Report Type: Spontaneous
  Country: US (occurrence: US)
  Receive Date: 20250910
  Receipt Date: 20250910
  Transmission Date: 20251021
  Serious: No
  Sender: DR REDDYS
  Company Number: US-DRL-USA-USA/2025/08/013375

PATIENT
  Sex: Male

DRUGS (1)
  1. DIFLUPREDNATE [Suspect]
     Active Substance: DIFLUPREDNATE
     Indication: Corneal transplant
     Dosage: OPHTHALMIC EMULSION / FOUR TIMES A DAY
     Route: 047

REACTIONS (3)
  - Accidental exposure to product [Unknown]
  - Product use issue [Unknown]
  - Drug delivery system issue [Unknown]
